APPROVED DRUG PRODUCT: OXYCODONE HYDROCHLORIDE
Active Ingredient: OXYCODONE HYDROCHLORIDE
Strength: 5MG
Dosage Form/Route: CAPSULE;ORAL
Application: A203823 | Product #001
Applicant: LANNETT CO INC
Approved: Aug 1, 2014 | RLD: No | RS: No | Type: DISCN